FAERS Safety Report 10697229 (Version 2)
Quarter: 2015Q1

REPORT INFORMATION
  Report Type: Spontaneous
  Country: US (occurrence: None)
  Receive Date: 20150106
  Receipt Date: 20150121
  Transmission Date: 20150721
  Serious: Yes (Death)
  Sender: FDA-Public Use
  Company Number: HA14-443-AE

PATIENT
  Age: 99 Year
  Sex: Male
  Weight: 68.04 kg

DRUGS (8)
  1. MORPHINE [Concomitant]
     Active Substance: MORPHINE
  2. NAPROXEN. [Suspect]
     Active Substance: NAPROXEN
     Indication: LIMB DISCOMFORT
     Dosage: TWICE DAILY, PRN, ORAL
     Route: 048
     Dates: start: 201202, end: 201308
  3. FINASTERIDE. [Concomitant]
     Active Substance: FINASTERIDE
  4. DONEZEPIL [Concomitant]
     Active Substance: DONEPEZIL
  5. KEPPRA [Concomitant]
     Active Substance: LEVETIRACETAM
  6. PROPONIX [Concomitant]
  7. COLACE [Concomitant]
     Active Substance: DOCUSATE SODIUM
  8. FLOMAX [Concomitant]
     Active Substance: TAMSULOSIN HYDROCHLORIDE

REACTIONS (8)
  - Gastric perforation [None]
  - Accidental overdose [None]
  - Haemorrhage [None]
  - Pain [None]
  - Gastric haemorrhage [None]
  - Lung disorder [None]
  - Intestinal haemorrhage [None]
  - Seizure [None]

NARRATIVE: CASE EVENT DATE: 20130404
